FAERS Safety Report 14510785 (Version 1)
Quarter: 2018Q1

REPORT INFORMATION
  Report Type: Spontaneous
  Country: US (occurrence: US)
  Receive Date: 20180208
  Receipt Date: 20180208
  Transmission Date: 20180509
  Serious: No
  Sender: FDA-Public Use
  Company Number: None

PATIENT
  Age: 66 Year
  Sex: Male

DRUGS (1)
  1. HUMIRA [Suspect]
     Active Substance: ADALIMUMAB
     Indication: COLITIS ULCERATIVE
     Dosage: 40 MG/0.8 ML Q2WKS SC
     Route: 058
     Dates: start: 20171001

REACTIONS (1)
  - Gout [None]

NARRATIVE: CASE EVENT DATE: 20180122
